FAERS Safety Report 14728625 (Version 2)
Quarter: 2018Q2

REPORT INFORMATION
  Report Type: Spontaneous
  Country: GR (occurrence: GR)
  Receive Date: 20180406
  Receipt Date: 20180411
  Transmission Date: 20180711
  Serious: Yes (Other)
  Sender: FDA-Public Use
  Company Number: GR-009507513-1803GRC013047

PATIENT
  Age: 74 Year
  Sex: Male
  Weight: 68 kg

DRUGS (5)
  1. ACCURETIC [Concomitant]
     Active Substance: HYDROCHLOROTHIAZIDE\QUINAPRIL HYDROCHLORIDE
     Dosage: 0.5 DF, QD
  2. EZETROL [Suspect]
     Active Substance: EZETIMIBE
     Indication: BLOOD TRIGLYCERIDES INCREASED
     Dosage: 1 DF, QD
     Route: 048
     Dates: start: 20180117, end: 20180207
  3. NOVO-NORM [Concomitant]
     Active Substance: REPAGLINIDE
     Dosage: 2 DF, QD
  4. AMLOPEN [Concomitant]
     Dosage: 1 DF, QD
  5. NEOCARDON [Concomitant]
     Active Substance: ATENOLOL
     Dosage: 0.25 DF, UNK

REACTIONS (1)
  - Muscular weakness [Recovered/Resolved]

NARRATIVE: CASE EVENT DATE: 20180117
